FAERS Safety Report 13123374 (Version 1)
Quarter: 2017Q1

REPORT INFORMATION
  Report Type: Spontaneous
  Country: US (occurrence: US)
  Receive Date: 20170117
  Receipt Date: 20170117
  Transmission Date: 20170428
  Serious: No
  Sender: FDA-Public Use
  Company Number: US-ALLERGAN-1670029US

PATIENT
  Age: 58 Year
  Sex: Male
  Weight: 67.7 kg

DRUGS (3)
  1. BOOSTRIX [Concomitant]
     Active Substance: TETANUS TOXOID, REDUCED DIPHTHERIA TOXOID AND ACELLULAR PERTUSSIS VACCINE, ADSORBED ANTIGENS
     Indication: WOUND
     Dosage: 0.5 ML, SINGLE
     Route: 030
     Dates: start: 201609, end: 201609
  2. CLINDAMYCIN. [Concomitant]
     Active Substance: CLINDAMYCIN
     Indication: CELLULITIS
     Dosage: 900 MG, SINGLE
     Route: 042
     Dates: start: 201609, end: 201609
  3. DALVANCE [Suspect]
     Active Substance: DALBAVANCIN
     Indication: SOFT TISSUE INFECTION
     Dosage: 1500 MG, SINGLE
     Route: 042
     Dates: start: 20160916, end: 20160916

REACTIONS (2)
  - Chest pain [Recovered/Resolved]
  - Product preparation error [Unknown]

NARRATIVE: CASE EVENT DATE: 20160916
